FAERS Safety Report 6431708-4 (Version None)
Quarter: 2009Q4

REPORT INFORMATION
  Report Type: 
  Country: None (occurrence: None)
  Receive Date: 20091103
  Receipt Date: 20091019
  Transmission Date: 20100525
  Serious: Yes (Life-Threatening, Hospitalization)
  Sender: FDA-Public Use
  Company Number: 02100-JPN-05-0285

PATIENT
  Age: 70 Year
  Sex: Male
  Weight: 62 kg

DRUGS (7)
  1. PLETAL [Suspect]
     Indication: CEREBRAL INFARCTION
     Dosage: 81 MG, QD
     Route: 048
     Dates: start: 20041204, end: 20080529
  2. SERMION (NICERGOLINE) TABLET [Concomitant]
  3. AMARYL [Concomitant]
  4. MUCODYNE (CARBOCISTEINE) TABLET [Concomitant]
  5. ATELEC (CLINIDIPINE) TABLET [Concomitant]
  6. MAGMITT (MAGNESIUM OXIDE) TABLET [Concomitant]
  7. GASPORT (FAMOTIDINE) TABLET [Concomitant]

REACTIONS (8)
  - ANAEMIA [None]
  - BRONCHOPNEUMONIA [None]
  - CHOKING [None]
  - CONDITION AGGRAVATED [None]
  - DIABETES MELLITUS [None]
  - GASTRIC ULCER HAEMORRHAGE [None]
  - PNEUMONIA ASPIRATION [None]
  - WHEEZING [None]
